FAERS Safety Report 4431240-3 (Version None)
Quarter: 2004Q3

REPORT INFORMATION
  Report Type: 
  Country: None (occurrence: None)
  Receive Date: 20040824
  Receipt Date: 20040812
  Transmission Date: 20050211
  Serious: Yes (Life-Threatening, Hospitalization)
  Sender: FDA-Public Use
  Company Number: GB-AMGEN-US087974

PATIENT
  Age: 56 Year
  Sex: Male

DRUGS (5)
  1. ENBREL [Suspect]
     Indication: DRUG USE FOR UNKNOWN INDICATION
     Route: 058
     Dates: start: 20031116, end: 20040628
  2. METHOTREXATE [Concomitant]
     Dates: end: 20040628
  3. ARTHROTEC [Concomitant]
     Dates: end: 20040628
  4. FOLIC ACID [Concomitant]
     Dates: end: 20040628
  5. SIMVASTATIN [Concomitant]

REACTIONS (2)
  - ANGINA PECTORIS [None]
  - CORONARY ARTERY DISEASE [None]
